FAERS Safety Report 20727014 (Version 4)
Quarter: 2024Q2

REPORT INFORMATION
  Report Type: Spontaneous
  Country: US (occurrence: US)
  Receive Date: 20220419
  Receipt Date: 20240402
  Transmission Date: 20240716
  Serious: Yes (Other)
  Sender: FDA-Public Use
  Company Number: US-PFIZER INC-202200106550

PATIENT
  Age: 69 Year
  Sex: Female

DRUGS (6)
  1. IBRANCE [Suspect]
     Active Substance: PALBOCICLIB
     Dosage: 100 MG, CYCLIC (DAILY FOR 3 WEEKS THEN 1 WEEK OFF)
     Dates: start: 201809
  2. IBRANCE [Suspect]
     Active Substance: PALBOCICLIB
     Dosage: 75 MG, CYCLIC
  3. IBRANCE [Suspect]
     Active Substance: PALBOCICLIB
     Dosage: 100 MG, 1 DAILY FOR 21 DAYS
  4. IBRANCE [Suspect]
     Active Substance: PALBOCICLIB
     Dosage: 100 MG, TAKE 1 TABLET DAILY FOR 3 WEEKS, THEN 1 WEEK OFF
     Route: 048
     Dates: end: 202307
  5. IBRANCE [Suspect]
     Active Substance: PALBOCICLIB
     Dosage: 100 MG, TAKE 1 TABLET DAILY FOR 3 WEEKS, THEN 1 WEEK OFF
     Route: 048
     Dates: start: 2023
  6. IBRANCE [Suspect]
     Active Substance: PALBOCICLIB
     Dosage: 100 MG, CYCLIC
     Dates: start: 20240304

REACTIONS (7)
  - Knee arthroplasty [Unknown]
  - White blood cell count decreased [Recovered/Resolved]
  - Full blood count decreased [Recovering/Resolving]
  - Sinus disorder [Recovering/Resolving]
  - Urinary tract infection [Recovering/Resolving]
  - Alopecia [Not Recovered/Not Resolved]
  - Full blood count abnormal [Recovering/Resolving]

NARRATIVE: CASE EVENT DATE: 20230701
